FAERS Safety Report 8541260-5 (Version None)
Quarter: 2012Q3

REPORT INFORMATION
  Report Type: 
  Country: None (occurrence: None)
  Receive Date: 20120716
  Receipt Date: 20120629
  Transmission Date: 20120928
  Serious: Yes (Other)
  Sender: FDA-Public Use
  Company Number: DSA_55111_2012

PATIENT
  Sex: Female
  Weight: 83.9154 kg

DRUGS (13)
  1. XENAZINE [Suspect]
  2. LOTREL [Concomitant]
  3. ATIVAN [Concomitant]
  4. LORTAB [Concomitant]
  5. SYNTHROID [Concomitant]
  6. ADVAIR [Concomitant]
  7. PROVENTIL [Concomitant]
  8. XENAZINE [Suspect]
     Indication: DYSKINESIA
     Dosage: 25;12.5 MG, BID ORAL
     Route: 048
     Dates: start: 20120101, end: 20120101
  9. XENAZINE [Suspect]
     Indication: DYSKINESIA
     Dosage: 25;12.5 MG, BID ORAL
     Route: 048
     Dates: start: 20120101, end: 20120101
  10. XENAZINE [Suspect]
     Indication: DYSKINESIA
     Dosage: 25;12.5 MG, BID ORAL
     Route: 048
     Dates: start: 20120101
  11. XENAZINE [Suspect]
     Indication: DYSKINESIA
     Dosage: 25;12.5 MG, BID ORAL
     Route: 048
     Dates: start: 20111020
  12. CYMBALTA [Concomitant]
  13. ARTANE [Concomitant]

REACTIONS (10)
  - SUICIDAL IDEATION [None]
  - EATING DISORDER [None]
  - ASPIRATION [None]
  - MOVEMENT DISORDER [None]
  - BACK PAIN [None]
  - ORAL PAIN [None]
  - DEMENTIA ALZHEIMER'S TYPE [None]
  - BLOOD THYROID STIMULATING HORMONE DECREASED [None]
  - INTENTIONAL SELF-INJURY [None]
  - TOOTH FRACTURE [None]
